FAERS Safety Report 21904287 (Version 3)
Quarter: 2023Q1

REPORT INFORMATION
  Report Type: Spontaneous
  Country: CN (occurrence: CN)
  Receive Date: 20230124
  Receipt Date: 20230201
  Transmission Date: 20230417
  Serious: Yes (Other)
  Sender: FDA-Public Use
  Company Number: CN-PFIZER INC-PV202300013288

PATIENT
  Age: 70 Year
  Sex: Male
  Weight: 68 kg

DRUGS (11)
  1. NIRMATRELVIR\RITONAVIR [Suspect]
     Active Substance: NIRMATRELVIR\RITONAVIR
     Indication: Antiviral treatment
     Dosage: 3 TABLETS, Q12H
     Route: 045
  2. DALTEPARIN SODIUM [Suspect]
     Active Substance: DALTEPARIN SODIUM
     Indication: Pneumonia
     Dosage: 5000.000 IU, 2X/DAY
     Route: 058
     Dates: start: 20230103, end: 20230115
  3. SODIUM CHLORIDE [Concomitant]
     Active Substance: SODIUM CHLORIDE
     Indication: Vehicle solution use
     Dosage: 100.000 ML, 1X/DAY
     Route: 041
     Dates: start: 20230103, end: 20230107
  4. SODIUM CHLORIDE [Concomitant]
     Active Substance: SODIUM CHLORIDE
     Indication: Vehicle solution use
     Dosage: 50.000 ML, 3X/DAY
     Route: 041
     Dates: start: 20230103, end: 20230118
  5. SODIUM CHLORIDE [Concomitant]
     Active Substance: SODIUM CHLORIDE
     Dosage: 50.000 ML, 3X/DAY
     Route: 041
     Dates: start: 20230107, end: 20230118
  6. CEFTRIAXONE SODIUM [Concomitant]
     Active Substance: CEFTRIAXONE SODIUM
     Indication: Pneumonia
     Dosage: 2.000 G, 1X/DAY
     Route: 041
     Dates: start: 20230103, end: 20230107
  7. MEROPENEM [Concomitant]
     Active Substance: MEROPENEM
     Indication: Pneumonia
     Dosage: 1.000 G, 3X/DAY
     Route: 041
     Dates: start: 20230107, end: 20230118
  8. AMBROXOL HYDROCHLORIDE [Concomitant]
     Active Substance: AMBROXOL HYDROCHLORIDE
     Indication: Pneumonia
     Dosage: 30.000 MG, 3X/DAY
     Route: 041
     Dates: start: 20230103, end: 20230118
  9. MOXIFLOXACIN HYDROCHLORIDE [Concomitant]
     Active Substance: MOXIFLOXACIN HYDROCHLORIDE
     Indication: Pneumonia
     Dosage: 0.400 G, 1X/DAY
     Route: 041
     Dates: start: 20230104, end: 20230107
  10. ENTERAL NUTRITIONAL EMULSION (TPF-D) [Concomitant]
     Indication: Pneumonia
     Dosage: 1000.000 ML, 1X/DAY
     Route: 045
     Dates: start: 20230104, end: 20230115
  11. AZVUDINE [Concomitant]
     Indication: Pneumonia
     Dosage: 5.000 MG, 1X/DAY
     Route: 045
     Dates: start: 20230106, end: 20230111

REACTIONS (1)
  - Upper gastrointestinal haemorrhage [Recovering/Resolving]

NARRATIVE: CASE EVENT DATE: 20230115
